FAERS Safety Report 13882900 (Version 1)
Quarter: 2017Q3

REPORT INFORMATION
  Report Type: Spontaneous
  Country: US (occurrence: US)
  Receive Date: 20170818
  Receipt Date: 20170818
  Transmission Date: 20171127
  Serious: No
  Sender: FDA-Public Use
  Company Number: US-PFIZER INC-2017355206

PATIENT
  Age: 68 Year
  Sex: Female
  Weight: 74.38 kg

DRUGS (1)
  1. IBRANCE [Suspect]
     Active Substance: PALBOCICLIB
     Indication: BREAST CANCER FEMALE
     Dosage: 125 MG, CYCLIC (125 MG/CAPSULE DAILY/1-21 DAYS)
     Route: 048
     Dates: start: 20170706

REACTIONS (3)
  - Stomatitis [Unknown]
  - Decreased appetite [Unknown]
  - Fluid intake reduced [Unknown]

NARRATIVE: CASE EVENT DATE: 2017
